FAERS Safety Report 26071775 (Version 1)
Quarter: 2025Q4

REPORT INFORMATION
  Report Type: Report from Study
  Country: US (occurrence: US)
  Receive Date: 20251120
  Receipt Date: 20251120
  Transmission Date: 20260118
  Serious: Yes (Other)
  Sender: ALEXION PHARMACEUTICALS
  Company Number: US-AstraZeneca-CH-00967026A

PATIENT
  Sex: Female
  Weight: 71.655 kg

DRUGS (2)
  1. OLAPARIB [Suspect]
     Active Substance: OLAPARIB
     Dosage: 100 MILLIGRAM AM, 200 MILLIGRAM PM
     Dates: start: 20220817, end: 20241024
  2. OLAPARIB [Suspect]
     Active Substance: OLAPARIB
     Dosage: 100 MILLIGRAM AM, 200 MILLIGRAM PM

REACTIONS (6)
  - Eye disorder [Unknown]
  - Nausea [Unknown]
  - Dizziness [Unknown]
  - Renal disorder [Unknown]
  - Abdominal discomfort [Unknown]
  - Tumour marker increased [Unknown]
